FAERS Safety Report 24600951 (Version 1)
Quarter: 2024Q4

REPORT INFORMATION
  Report Type: Spontaneous
  Country: US (occurrence: US)
  Receive Date: 20241110
  Receipt Date: 20241110
  Transmission Date: 20250115
  Serious: No
  Sender: BAUSCH AND LOMB
  Company Number: US-BAUSCHBL-2024BNL036822

PATIENT
  Age: 66 Year
  Sex: Male

DRUGS (1)
  1. XIIDRA [Suspect]
     Active Substance: LIFITEGRAST
     Indication: Dry eye
     Route: 047
     Dates: start: 2024

REACTIONS (7)
  - Eye irritation [Unknown]
  - Skin irritation [Unknown]
  - Lacrimation increased [Unknown]
  - Rash erythematous [Unknown]
  - Nasal discomfort [Unknown]
  - Eye discharge [Unknown]
  - Eyelid margin crusting [Unknown]

NARRATIVE: CASE EVENT DATE: 20240101
